FAERS Safety Report 8676902 (Version 2)
Quarter: 2012Q4

REPORT INFORMATION
  Report Type: Spontaneous
  Country: GB (occurrence: None)
  Receive Date: 20120705
  Receipt Date: 20120919
  Transmission Date: 20130627
  Serious: Yes (Disabling)
  Sender: FDA-Public Use
  Company Number: FK201201780

PATIENT
  Age: 83 Year
  Sex: Female
  Weight: 49.1 kg

DRUGS (4)
  1. ANASTROZOLE [Suspect]
     Dates: start: 20120308, end: 20120313
  2. CONOTRANE (CONOTRANE /01805801/) [Concomitant]
  3. IBUPROFEN [Concomitant]
  4. TAMOXIFEN CITRATE [Concomitant]

REACTIONS (1)
  - Suicidal ideation [None]
